FAERS Safety Report 10804815 (Version 1)
Quarter: 2015Q1

REPORT INFORMATION
  Report Type: Report from Study
  Country: US (occurrence: US)
  Receive Date: 20150217
  Receipt Date: 20150217
  Transmission Date: 20150721
  Serious: No
  Sender: FDA-Public Use
  Company Number: US-ABBVIE-14K-163-1249088-00

PATIENT
  Age: 69 Year
  Sex: Female

DRUGS (18)
  1. LEVOTHYROXINE [Concomitant]
     Active Substance: LEVOTHYROXINE
     Indication: HYPOTHYROIDISM
     Dosage: AN ADDITIONAL 0.25 MCG MONDAY, WEDNESDAY + FRIDAYS BECAUSE THEY GET CORRECT DOSAGE LEVEL
  2. FLOURIDE [Concomitant]
     Indication: TOOTH DISORDER
  3. HUMIRA [Suspect]
     Active Substance: ADALIMUMAB
     Indication: CROHN^S DISEASE
     Dates: start: 20140610, end: 20140610
  4. CENTRUM [Concomitant]
     Active Substance: VITAMINS
     Indication: NERVOUS SYSTEM DISORDER
  5. PENTASA [Concomitant]
     Active Substance: MESALAMINE
     Indication: PRODUCT USED FOR UNKNOWN INDICATION
  6. FISH OIL [Concomitant]
     Active Substance: FISH OIL
     Indication: PRODUCT USED FOR UNKNOWN INDICATION
     Dosage: 1000 MG/300 MG OMEGA THREE TAKE TWO
  7. ENALAPRIL [Concomitant]
     Active Substance: ENALAPRIL
     Indication: PRODUCT USED FOR UNKNOWN INDICATION
  8. FIBER [Concomitant]
     Active Substance: PSYLLIUM HUSK
     Indication: PRODUCT USED FOR UNKNOWN INDICATION
  9. UNKNOWN OINTMENT [Concomitant]
     Active Substance: UNSPECIFIED INGREDIENT
     Indication: DRY EYE
  10. AMLODIPINE [Concomitant]
     Active Substance: AMLODIPINE BESYLATE
     Indication: HYPERTENSION
  11. VITAMIN D [Concomitant]
     Active Substance: CHOLECALCIFEROL
     Indication: PRODUCT USED FOR UNKNOWN INDICATION
     Dosage: 1000
  12. CENTRUM SILVER [Concomitant]
     Active Substance: VITAMINS
     Indication: PRODUCT USED FOR UNKNOWN INDICATION
  13. CENTRUM [Concomitant]
     Active Substance: VITAMINS
     Indication: EYE DISORDER
  14. ULTIMA [Concomitant]
     Indication: PRODUCT USED FOR UNKNOWN INDICATION
  15. HUMIRA [Suspect]
     Active Substance: ADALIMUMAB
  16. CALCITRATE [Concomitant]
     Indication: CALCIUM DEFICIENCY
  17. CENTRUM [Concomitant]
     Active Substance: VITAMINS
     Indication: CARDIAC DISORDER
  18. REFRESH CLASSIC LUCRICANT EYE DROPS [Concomitant]
     Indication: DRY EYE

REACTIONS (1)
  - Injection site pain [Recovered/Resolved]

NARRATIVE: CASE EVENT DATE: 20140610
